FAERS Safety Report 7045528-3 (Version None)
Quarter: 2010Q4

REPORT INFORMATION
  Report Type: 
  Country: None (occurrence: None)
  Receive Date: 20101014
  Receipt Date: 20101006
  Transmission Date: 20110411
  Serious: Yes (Hospitalization)
  Sender: FDA-Public Use
  Company Number: US-US-EMD SERONO, INC.-7017519

PATIENT
  Sex: Female
  Weight: 73 kg

DRUGS (5)
  1. REBIF [Suspect]
     Indication: MULTIPLE SCLEROSIS
     Dates: start: 20041122, end: 20090101
  2. REBIF [Suspect]
     Route: 058
     Dates: start: 20100216
  3. ZANAFLEX [Concomitant]
  4. REQUIP [Concomitant]
  5. PAXIL [Concomitant]

REACTIONS (8)
  - BALANCE DISORDER [None]
  - CHILLS [None]
  - FALL [None]
  - HEADACHE [None]
  - INJECTION SITE MASS [None]
  - INJECTION SITE PAIN [None]
  - MYALGIA [None]
  - SUBDURAL HAEMATOMA [None]
